FAERS Safety Report 16869670 (Version 1)
Quarter: 2019Q3

REPORT INFORMATION
  Report Type: Report from Study
  Country: IT (occurrence: IT)
  Receive Date: 20190930
  Receipt Date: 20190930
  Transmission Date: 20191005
  Serious: Yes (Other)
  Sender: FDA-Public Use
  Company Number: IT-MYLANLABS-2019M1090560

PATIENT
  Age: 44 Year
  Sex: Female

DRUGS (3)
  1. PANTOPRAZOLE SODIUM SESQUIHYDRATE [Concomitant]
     Active Substance: PANTOPRAZOLE SODIUM
     Indication: ANTIINFLAMMATORY THERAPY
     Dosage: 20 MILLIGRAM, QD
     Route: 048
  2. BRUFEN [Suspect]
     Active Substance: IBUPROFEN
     Indication: PERICARDITIS
     Dosage: 1800 MILLIGRAM, QD
     Route: 048
     Dates: start: 20190109, end: 20190209
  3. LEXOTAN [Concomitant]
     Active Substance: BROMAZEPAM
     Dosage: UNK
     Route: 048

REACTIONS (2)
  - Hypertensive crisis [Recovering/Resolving]
  - Palpitations [Recovering/Resolving]

NARRATIVE: CASE EVENT DATE: 20190204
